FAERS Safety Report 13160574 (Version 1)
Quarter: 2017Q1

REPORT INFORMATION
  Report Type: Spontaneous
  Country: US (occurrence: US)
  Receive Date: 20170129
  Receipt Date: 20170129
  Transmission Date: 20170428
  Serious: Yes (Other)
  Sender: FDA-Public Use
  Company Number: US-DRREDDYS-USA/USA/17/0086439

PATIENT
  Sex: Male

DRUGS (3)
  1. ZENATANE [Suspect]
     Active Substance: ISOTRETINOIN
     Indication: ACNE
     Route: 065
     Dates: start: 20161122
  2. CLARAVIS [Concomitant]
     Active Substance: ISOTRETINOIN
     Route: 065
     Dates: start: 20161109, end: 20161230
  3. CLARAVIS [Concomitant]
     Active Substance: ISOTRETINOIN
     Indication: ACNE
     Route: 065
     Dates: start: 20161020, end: 20161026

REACTIONS (3)
  - Affective disorder [Unknown]
  - Hepatic enzyme increased [Unknown]
  - Arthralgia [Unknown]
